FAERS Safety Report 18316426 (Version 1)
Quarter: 2020Q3

REPORT INFORMATION
  Report Type: Report from Study
  Country: US (occurrence: UG)
  Receive Date: 20200927
  Receipt Date: 20200927
  Transmission Date: 20201103
  Serious: Yes (Other)
  Sender: FDA-Public Use
  Company Number: US-JNJFOC-20200933484

PATIENT

DRUGS (9)
  1. HALOPERIDOL. [Interacting]
     Active Substance: HALOPERIDOL
     Indication: MENINGITIS CRYPTOCOCCAL
     Route: 065
  2. FLUCONAZOLE. [Interacting]
     Active Substance: FLUCONAZOLE
     Indication: MENINGITIS CRYPTOCOCCAL
     Route: 065
  3. COTRIMOXAZOLE [Interacting]
     Active Substance: SULFAMETHOXAZOLE\TRIMETHOPRIM
     Indication: MENINGITIS CRYPTOCOCCAL
     Route: 065
  4. ISONIAZID. [Interacting]
     Active Substance: ISONIAZID
     Indication: MENINGITIS CRYPTOCOCCAL
     Route: 065
  5. ZIDOVUDINE. [Interacting]
     Active Substance: ZIDOVUDINE
     Indication: MENINGITIS CRYPTOCOCCAL
     Route: 065
  6. ULTRAM [Suspect]
     Active Substance: TRAMADOL HYDROCHLORIDE
     Indication: MENINGITIS CRYPTOCOCCAL
     Route: 065
  7. METOCLOPRAMIDE. [Interacting]
     Active Substance: METOCLOPRAMIDE
     Indication: MENINGITIS CRYPTOCOCCAL
     Route: 065
  8. PARACETAMOL [Interacting]
     Active Substance: ACETAMINOPHEN
     Indication: MENINGITIS CRYPTOCOCCAL
     Route: 065
  9. ARTANE [Interacting]
     Active Substance: TRIHEXYPHENIDYL HYDROCHLORIDE
     Indication: MENINGITIS CRYPTOCOCCAL
     Route: 065

REACTIONS (10)
  - Electrocardiogram QT prolonged [Unknown]
  - Torsade de pointes [Unknown]
  - Respiratory depression [Unknown]
  - Extrapyramidal disorder [Unknown]
  - Anticholinergic syndrome [Unknown]
  - Off label use [Unknown]
  - Neuroleptic malignant syndrome [Unknown]
  - Hepatotoxicity [Unknown]
  - Drug interaction [Unknown]
  - Product use in unapproved indication [Unknown]
